FAERS Safety Report 16279075 (Version 1)
Quarter: 2019Q2

REPORT INFORMATION
  Report Type: Other
  Country: RU (occurrence: RU)
  Receive Date: 20190506
  Receipt Date: 20190506
  Transmission Date: 20190711
  Serious: Yes (Life-Threatening)
  Sender: FDA-Public Use
  Company Number: RU-ARALEZ PHARMACEUTICALS R+D INC.-2019-ARA-001316

PATIENT
  Age: 79 Year
  Sex: Female
  Weight: 90 kg

DRUGS (11)
  1. METOPROLOL SUCCINATE. [Suspect]
     Active Substance: METOPROLOL SUCCINATE
     Indication: MYOCARDIAL ISCHAEMIA
  2. DROTAVERINE HYDROCHLORIDE [Concomitant]
     Active Substance: DROTAVERINE HYDROCHLORIDE
     Indication: CHEST PAIN
     Dosage: OCCASIONALLY (SELF-ADMINISTERED, NOT PRESCRIBED BY A DOCTOR)
     Route: 048
  3. VALOCORDIN [Concomitant]
     Active Substance: BROMISOVAL\HOPS\PHENOBARBITAL
     Indication: CHEST PAIN
     Dosage: OCCASIONALLY SELF-ADMINISTERED, NOT PRESCRIBED BY A DOCTOR
     Route: 048
  4. METOPROLOL SUCCINATE. [Suspect]
     Active Substance: METOPROLOL SUCCINATE
     Indication: HYPERTENSION
     Dosage: 25 MG, BID
     Route: 048
     Dates: start: 20190122, end: 20190124
  5. LORISTA [Concomitant]
     Active Substance: LOSARTAN POTASSIUM
     Indication: CARDIAC FAILURE CHRONIC
     Dosage: 50 MG, BID
     Route: 048
     Dates: start: 20190122, end: 20190124
  6. CORONAL                            /00802602/ [Concomitant]
     Indication: CORONARY ARTERY DISEASE
  7. XARELTO [Concomitant]
     Active Substance: RIVAROXABAN
     Indication: ATRIAL FIBRILLATION
     Dosage: 20 MG, QD
     Route: 048
     Dates: start: 20190123, end: 20190124
  8. LORISTA [Concomitant]
     Active Substance: LOSARTAN POTASSIUM
     Indication: HYPERTENSION
     Dosage: UNK
     Route: 048
     Dates: end: 20190122
  9. CORONAL                            /00802602/ [Concomitant]
     Indication: HYPERTENSION
     Dosage: LONG-TERM ADMINISTRATION
     Route: 048
     Dates: end: 20190122
  10. MOXONIDINE [Concomitant]
     Active Substance: MOXONIDINE
     Indication: HYPERTENSION
     Dosage: PROLONGED ADMINISTRATION
     Route: 048
     Dates: end: 20190122
  11. VEROSPIRON [Concomitant]
     Active Substance: SPIRONOLACTONE
     Indication: HYPERTENSION
     Dosage: LONG-TERM ADMINISTRATION
     Route: 048
     Dates: end: 20190122

REACTIONS (5)
  - Cyanosis [Not Recovered/Not Resolved]
  - Acute hepatitis B [Not Recovered/Not Resolved]
  - Cholestasis [Not Recovered/Not Resolved]
  - Renal impairment [Not Recovered/Not Resolved]
  - Nausea [Not Recovered/Not Resolved]

NARRATIVE: CASE EVENT DATE: 20190124
